FAERS Safety Report 14201603 (Version 3)
Quarter: 2018Q2

REPORT INFORMATION
  Report Type: Spontaneous
  Country: US (occurrence: US)
  Receive Date: 20171117
  Receipt Date: 20180615
  Transmission Date: 20180711
  Serious: Yes (Disabling, Other)
  Sender: FDA-Public Use
  Company Number: US-ASTRAZENECA-2017SF15413

PATIENT
  Age: 20610 Day
  Sex: Female
  Weight: 55.8 kg

DRUGS (17)
  1. PRILOSEC OTC [Suspect]
     Active Substance: OMEPRAZOLE MAGNESIUM
     Indication: GASTROOESOPHAGEAL REFLUX DISEASE
     Route: 048
     Dates: start: 2008, end: 2015
  2. BUPROPION. [Concomitant]
     Active Substance: BUPROPION
     Indication: DEPRESSION
  3. MECLIZINE [Concomitant]
     Active Substance: MECLIZINE HYDROCHLORIDE
     Dates: start: 2015
  4. ZANTAC [Suspect]
     Active Substance: RANITIDINE HYDROCHLORIDE
  5. PRILOSEC OTC [Suspect]
     Active Substance: OMEPRAZOLE MAGNESIUM
     Indication: PEPTIC ULCER
     Route: 048
     Dates: start: 2008, end: 2015
  6. SPIRIVA [Concomitant]
     Active Substance: TIOTROPIUM BROMIDE MONOHYDRATE
     Indication: CHRONIC OBSTRUCTIVE PULMONARY DISEASE
     Dates: start: 2015
  7. DUONEB INHALER [Concomitant]
     Indication: CHRONIC OBSTRUCTIVE PULMONARY DISEASE
     Dates: start: 2015
  8. ADVAIR HFA [Concomitant]
     Active Substance: FLUTICASONE PROPIONATE\SALMETEROL XINAFOATE
     Indication: CHRONIC OBSTRUCTIVE PULMONARY DISEASE
     Dates: start: 2015
  9. LISINOPRIL. [Concomitant]
     Active Substance: LISINOPRIL
     Indication: HYPERTENSION
     Dates: start: 2015
  10. CIMETIDINE [Concomitant]
     Active Substance: CIMETIDINE
     Dates: start: 2015
  11. ALPRAZOLAM. [Concomitant]
     Active Substance: ALPRAZOLAM
     Indication: ANXIETY
     Dates: start: 2015
  12. PEPCID OTC [Concomitant]
     Dates: start: 2015
  13. CIMETIDINE [Suspect]
     Active Substance: CIMETIDINE
  14. ALBUTEROL. [Concomitant]
     Active Substance: ALBUTEROL
     Indication: CHRONIC OBSTRUCTIVE PULMONARY DISEASE
     Dates: start: 2015
  15. CLARITIN [Concomitant]
     Active Substance: LORATADINE
     Dates: start: 2015
  16. TRAMADOL HYDROCHLORIDE. [Concomitant]
     Active Substance: TRAMADOL HYDROCHLORIDE
     Dates: start: 2015
  17. CELEBREX [Concomitant]
     Active Substance: CELECOXIB
     Dates: start: 2015

REACTIONS (7)
  - Urinary tract infection [Unknown]
  - Renal failure [Unknown]
  - Chronic kidney disease [Not Recovered/Not Resolved]
  - Acute kidney injury [Unknown]
  - Chronic obstructive pulmonary disease [Unknown]
  - Anxiety [Unknown]
  - Nephropathy [Not Recovered/Not Resolved]

NARRATIVE: CASE EVENT DATE: 20140912
